FAERS Safety Report 24809785 (Version 2)
Quarter: 2025Q1

REPORT INFORMATION
  Report Type: Spontaneous
  Country: US (occurrence: US)
  Receive Date: 20250106
  Receipt Date: 20250107
  Transmission Date: 20250408
  Serious: No
  Sender: NOVARTIS
  Company Number: US-002147023-NVSC2025US000930

PATIENT
  Age: 52 Year
  Sex: Male
  Weight: 108.41 kg

DRUGS (1)
  1. COSENTYX [Suspect]
     Active Substance: SECUKINUMAB
     Indication: Hidradenitis
     Route: 058

REACTIONS (4)
  - Device defective [Recovered/Resolved]
  - Hidradenitis [Recovered/Resolved]
  - Condition aggravated [Recovered/Resolved]
  - Product distribution issue [Recovered/Resolved]

NARRATIVE: CASE EVENT DATE: 20241226
